FAERS Safety Report 25214395 (Version 3)
Quarter: 2025Q2

REPORT INFORMATION
  Report Type: Spontaneous
  Country: GR (occurrence: GR)
  Receive Date: 20250418
  Receipt Date: 20250521
  Transmission Date: 20250716
  Serious: No
  Sender: PFIZER
  Company Number: GR-PFIZER INC-PV202500041758

PATIENT
  Age: 11 Year
  Sex: Male
  Weight: 30 kg

DRUGS (2)
  1. GENOTROPIN [Suspect]
     Active Substance: SOMATROPIN
     Indication: Growth hormone deficiency
     Route: 058
     Dates: start: 202410
  2. GENOTROPIN [Suspect]
     Active Substance: SOMATROPIN
     Route: 058
     Dates: start: 202410

REACTIONS (5)
  - Device delivery system issue [Recovered/Resolved]
  - Incorrect dose administered by device [Recovered/Resolved]
  - Device mechanical issue [Recovered/Resolved]
  - Device use issue [Recovered/Resolved]
  - Device leakage [Recovered/Resolved]

NARRATIVE: CASE EVENT DATE: 20250404
